FAERS Safety Report 7117639-5 (Version None)
Quarter: 2010Q4

REPORT INFORMATION
  Report Type: 
  Country: None (occurrence: None)
  Receive Date: 20101122
  Receipt Date: 20101116
  Transmission Date: 20110411
  Serious: Yes (Hospitalization)
  Sender: FDA-Public Use
  Company Number: IT-BRISTOL-MYERS SQUIBB COMPANY-15391089

PATIENT
  Age: 52 Year
  Sex: Female

DRUGS (2)
  1. IXABEPILONE [Suspect]
     Indication: NEOPLASM
     Route: 042
     Dates: start: 20100702, end: 20101022
  2. CISPLATIN [Suspect]
     Indication: NEOPLASM
     Route: 042
     Dates: start: 20100702, end: 20101022

REACTIONS (2)
  - FEBRILE NEUTROPENIA [None]
  - PNEUMONITIS [None]
